FAERS Safety Report 4983887-3 (Version None)
Quarter: 2006Q2

REPORT INFORMATION
  Report Type: 
  Country: None (occurrence: None)
  Receive Date: 20060426
  Receipt Date: 20050117
  Transmission Date: 20061013
  Serious: Yes (Hospitalization)
  Sender: FDA-Public Use
  Company Number: US-MERCK-0501USA03028

PATIENT
  Age: 71 Year
  Sex: Male
  Weight: 79 kg

DRUGS (5)
  1. VIOXX [Suspect]
     Indication: INFLAMMATION
     Route: 048
     Dates: start: 20010726, end: 20040101
  2. VIOXX [Suspect]
     Route: 048
     Dates: start: 20010701, end: 20040101
  3. VIOXX [Suspect]
     Indication: ARTHRALGIA
     Route: 048
     Dates: start: 20010726, end: 20040101
  4. VIOXX [Suspect]
     Route: 048
     Dates: start: 20010701, end: 20040101
  5. [THERAPY UNSPECIFIED] [Concomitant]
     Indication: INFLAMMATION
     Route: 065

REACTIONS (25)
  - ABDOMINAL HERNIA [None]
  - ANGINA PECTORIS [None]
  - ANXIETY [None]
  - AORTIC VALVE INCOMPETENCE [None]
  - ARTERIOSCLEROSIS CORONARY ARTERY [None]
  - ATRIAL FIBRILLATION [None]
  - BACK DISORDER [None]
  - BRADYCARDIA [None]
  - CARDIAC MURMUR [None]
  - CHEST PAIN [None]
  - DERMATITIS ALLERGIC [None]
  - DIZZINESS [None]
  - DYSPNOEA [None]
  - EPICONDYLITIS [None]
  - FATIGUE [None]
  - HEADACHE [None]
  - HYPOTENSION [None]
  - INJURY [None]
  - MITRAL VALVE INCOMPETENCE [None]
  - MYOCARDIAL INFARCTION [None]
  - PARKINSON'S DISEASE [None]
  - PLEURAL EFFUSION [None]
  - PNEUMONIA [None]
  - SPINAL FRACTURE [None]
  - TACHYCARDIA [None]
